FAERS Safety Report 13528624 (Version 1)
Quarter: 2017Q2

REPORT INFORMATION
  Report Type: Spontaneous
  Country: DE (occurrence: DE)
  Receive Date: 20170509
  Receipt Date: 20170509
  Transmission Date: 20170830
  Serious: Yes (Death)
  Sender: FDA-Public Use
  Company Number: DE-TEVA-765469GER

PATIENT
  Age: 80 Year
  Sex: Female
  Weight: 92 kg

DRUGS (1)
  1. MTX [Suspect]
     Active Substance: METHOTREXATE SODIUM
     Indication: T-CELL TYPE ACUTE LEUKAEMIA
     Dates: start: 20170328, end: 20170405

REACTIONS (4)
  - Sepsis [Fatal]
  - Overdose [Fatal]
  - Drug prescribing error [Fatal]
  - Pancytopenia [Fatal]

NARRATIVE: CASE EVENT DATE: 2017
